FAERS Safety Report 24775156 (Version 1)
Quarter: 2024Q4

REPORT INFORMATION
  Report Type: Spontaneous
  Country: CN (occurrence: CN)
  Receive Date: 20241226
  Receipt Date: 20241226
  Transmission Date: 20250115
  Serious: Yes (Other)
  Sender: BEIGENE
  Company Number: CN-BEIGENE-BGN-2024-020664

PATIENT

DRUGS (8)
  1. TISLELIZUMAB [Suspect]
     Active Substance: TISLELIZUMAB
     Indication: Oesophageal squamous cell carcinoma
     Dosage: 200 MILLIGRAM
     Dates: start: 20240509
  2. TISLELIZUMAB [Suspect]
     Active Substance: TISLELIZUMAB
     Indication: Laryngeal squamous cell carcinoma
  3. CAPECITABINE [Concomitant]
     Active Substance: CAPECITABINE
     Indication: Oesophageal squamous cell carcinoma
     Dosage: 1.5 GRAM, BID
     Dates: start: 20240509
  4. CAPECITABINE [Concomitant]
     Active Substance: CAPECITABINE
     Indication: Laryngeal squamous cell carcinoma
     Dosage: 1.5 GRAM, BID
     Dates: start: 20240719
  5. CAPECITABINE [Concomitant]
     Active Substance: CAPECITABINE
     Dosage: 1.5 GRAM, BID
     Dates: start: 20240814
  6. OXALIPLATIN [Concomitant]
     Active Substance: OXALIPLATIN
     Indication: Oesophageal squamous cell carcinoma
     Dosage: 150 MILLIGRAM
     Dates: start: 20240509
  7. OXALIPLATIN [Concomitant]
     Active Substance: OXALIPLATIN
     Indication: Laryngeal squamous cell carcinoma
     Dosage: 150 MILLIGRAM
     Dates: start: 20240719
  8. OXALIPLATIN [Concomitant]
     Active Substance: OXALIPLATIN
     Dosage: 150 MILLIGRAM
     Dates: start: 20240814

REACTIONS (1)
  - Immune-mediated oesophagitis [Recovering/Resolving]

NARRATIVE: CASE EVENT DATE: 20240528
